FAERS Safety Report 22774566 (Version 2)
Quarter: 2024Q1

REPORT INFORMATION
  Report Type: Other
  Country: AU (occurrence: None)
  Receive Date: 20230802
  Receipt Date: 20240123
  Transmission Date: 20240409
  Serious: No
  Sender: FDA-Public Use
  Company Number: AU-ROCHE-3397552

PATIENT
  Sex: Female

DRUGS (1)
  1. OCRELIZUMAB [Suspect]
     Active Substance: OCRELIZUMAB
     Indication: Multiple sclerosis
     Route: 042
     Dates: start: 20230728

REACTIONS (3)
  - Herpes zoster [Recovered/Resolved]
  - Adenovirus infection [Recovered/Resolved]
  - Fatigue [Recovered/Resolved]
